FAERS Safety Report 9702069 (Version 1)
Quarter: 2013Q4

REPORT INFORMATION
  Report Type: Spontaneous
  Country: US (occurrence: None)
  Receive Date: 20131119
  Receipt Date: 20131119
  Transmission Date: 20140711
  Serious: Yes (Other)
  Sender: FDA-Public Use
  Company Number: 7249010

PATIENT
  Age: 12 Year
  Sex: Male

DRUGS (2)
  1. LEVOTHYROXINE (LEVOTHYROXINE) [Suspect]
     Indication: PRODUCT USED FOR UNKNOWN INDICATION
     Route: 042
  2. RANITIDINE (RANITIDINE) [Concomitant]

REACTIONS (1)
  - Hepatic adenoma [None]
